FAERS Safety Report 8577706-6 (Version None)
Quarter: 2012Q3

REPORT INFORMATION
  Report Type: 
  Country: None (occurrence: None)
  Receive Date: 20120808
  Receipt Date: 20120730
  Transmission Date: 20120928
  Serious: Yes (Other)
  Sender: FDA-Public Use
  Company Number: BE-AMGEN-BELSP2012048326

PATIENT
  Age: 48 Year
  Sex: Female

DRUGS (3)
  1. ENBREL [Suspect]
     Indication: PRODUCT USED FOR UNKNOWN INDICATION
     Dosage: 50 MG, WEEKLY
     Route: 058
     Dates: start: 20120601
  2. ZANTAC [Concomitant]
     Dosage: UNK
  3. FELDENE [Concomitant]
     Dosage: UNK

REACTIONS (2)
  - BRONCHITIS [None]
  - SINUSITIS [None]
